FAERS Safety Report 9312055 (Version 5)
Quarter: 2013Q3

REPORT INFORMATION
  Report Type: Report from Study
  Country: US (occurrence: US)
  Receive Date: 20130528
  Receipt Date: 20130826
  Transmission Date: 20140515
  Serious: Yes (Hospitalization)
  Sender: FDA-Public Use
  Company Number: PHHO2013US006894

PATIENT
  Age: 44 Year
  Sex: Female
  Weight: 122.45 kg

DRUGS (5)
  1. TASIGNA [Suspect]
     Indication: CHRONIC MYELOID LEUKAEMIA
     Dosage: 400 MG, BID
     Route: 048
     Dates: start: 20080813, end: 20130510
  2. TASIGNA [Suspect]
     Dosage: 400 MG, BID
     Route: 048
     Dates: end: 20130607
  3. LISINOPRIL HCTZ [Concomitant]
     Indication: HYPERTENSION
     Dosage: 20/12.5 MG
  4. AMLODIPINE BESYLATE [Concomitant]
     Indication: HYPERTENSION
  5. CITALOPRAM HYDROBROMIDE [Concomitant]
     Indication: DEPRESSION

REACTIONS (3)
  - Transient ischaemic attack [Recovered/Resolved with Sequelae]
  - Convulsion [Recovered/Resolved with Sequelae]
  - Cerebrovascular accident [Unknown]
